FAERS Safety Report 9931957 (Version 1)
Quarter: 2014Q1

REPORT INFORMATION
  Report Type: Spontaneous
  Country: US (occurrence: US)
  Receive Date: 20140228
  Receipt Date: 20140228
  Transmission Date: 20141002
  Serious: No
  Sender: FDA-Public Use
  Company Number: US-ABBVIE-13P-163-1131548-00

PATIENT
  Age: 37 Year
  Sex: Male

DRUGS (2)
  1. ANDROGEL [Suspect]
     Indication: BLOOD TESTOSTERONE DECREASED
     Dosage: 4 PUMPS DAILY.
  2. UNKNOWN MEDICATION [Concomitant]
     Indication: THYROID DISORDER

REACTIONS (2)
  - Hiccups [Not Recovered/Not Resolved]
  - Pelvic pain [Not Recovered/Not Resolved]
